FAERS Safety Report 18757881 (Version 1)
Quarter: 2021Q1

REPORT INFORMATION
  Report Type: Spontaneous
  Country: IL (occurrence: IL)
  Receive Date: 20210119
  Receipt Date: 20210119
  Transmission Date: 20210419
  Serious: Yes (Death, Other)
  Sender: FDA-Public Use
  Company Number: IL-ELI_LILLY_AND_COMPANY-IL202101005879

PATIENT
  Age: 49 Year
  Sex: Male

DRUGS (2)
  1. CIALIS [Suspect]
     Active Substance: TADALAFIL
     Indication: PRODUCT USED FOR UNKNOWN INDICATION
     Dosage: UNK UNK, UNKNOWN
     Route: 065
     Dates: start: 20140401
  2. PROPECIA [Suspect]
     Active Substance: FINASTERIDE
     Indication: ALOPECIA
     Dosage: UNK UNK, UNKNOWN
     Route: 065
     Dates: start: 201508

REACTIONS (7)
  - Completed suicide [Fatal]
  - Mental disorder [Unknown]
  - Anxiety [Not Recovered/Not Resolved]
  - Amyotrophic lateral sclerosis [Unknown]
  - Fatigue [Unknown]
  - Neoplasm malignant [Unknown]
  - Insomnia [Not Recovered/Not Resolved]

NARRATIVE: CASE EVENT DATE: 201508
